FAERS Safety Report 6409875-8 (Version None)
Quarter: 2009Q4

REPORT INFORMATION
  Report Type: 
  Country: None (occurrence: None)
  Receive Date: 20091022
  Receipt Date: 20091019
  Transmission Date: 20100525
  Serious: Yes (Hospitalization)
  Sender: FDA-Public Use
  Company Number: JP-B.I. PHARMACEUTICALS,INC./RIDGEFIELD-2009-BP-11269NB

PATIENT
  Sex: Female
  Weight: 50.8 kg

DRUGS (4)
  1. MICARDIS [Suspect]
     Indication: HYPERTENSION
     Dosage: 40 MG
     Route: 048
     Dates: start: 20090401, end: 20090630
  2. LIPITOR [Suspect]
     Indication: HYPERLIPIDAEMIA
     Dosage: 10 MG
     Route: 048
     Dates: end: 20090630
  3. AMARYL [Concomitant]
     Indication: DIABETES MELLITUS
     Dosage: 1 MG
     Route: 048
     Dates: end: 20090630
  4. ADONA [Concomitant]
     Indication: RETINAL HAEMORRHAGE
     Dosage: 10 MG
     Route: 048
     Dates: end: 20090630

REACTIONS (1)
  - EOSINOPHILIC PNEUMONIA [None]
